FAERS Safety Report 18257707 (Version 1)
Quarter: 2020Q3

REPORT INFORMATION
  Report Type: Spontaneous
  Country: US (occurrence: US)
  Receive Date: 20200911
  Receipt Date: 20200911
  Transmission Date: 20201103
  Serious: Yes (Other)
  Sender: FDA-Public Use
  Company Number: None

PATIENT
  Age: 72 Year
  Sex: Female

DRUGS (7)
  1. BACLOFEN 10 MG [Concomitant]
     Active Substance: BACLOFEN
     Dates: start: 20200101
  2. NORCO [Concomitant]
     Active Substance: ACETAMINOPHEN\HYDROCODONE BITARTRATE
     Dates: start: 20200804
  3. CITALOPRAM [Concomitant]
     Active Substance: CITALOPRAM HYDROBROMIDE
     Dates: start: 20200824
  4. GABAPENTIN 300 MG [Concomitant]
     Active Substance: GABAPENTIN
     Dates: start: 20200804
  5. BUPRENORPHINE AND NALOXONE SUBLINGUAL TABLETS [Suspect]
     Active Substance: BUPRENORPHINE\NALOXONE
     Indication: PAIN
     Route: 060
     Dates: start: 20200905, end: 20200906
  6. IBUPROFEN 600 MG [Concomitant]
     Active Substance: IBUPROFEN
     Dates: start: 20200101
  7. RAMELTEON 8 MG [Concomitant]
     Dates: start: 20200625

REACTIONS (3)
  - Feeling abnormal [None]
  - Withdrawal syndrome [None]
  - Product substitution issue [None]

NARRATIVE: CASE EVENT DATE: 20200906
